FAERS Safety Report 5298207-7 (Version None)
Quarter: 2007Q1

REPORT INFORMATION
  Report Type: 
  Country: None (occurrence: None)
  Receive Date: 20070207
  Receipt Date: 20061030
  Transmission Date: 20070707
  Serious: No
  Sender: FDA-Public Use
  Company Number: 2006PV024300

PATIENT
  Age: 60 Year
  Sex: Female
  Weight: 82.1011 kg

DRUGS (13)
  1. BYETTA [Suspect]
     Indication: DIABETES MELLITUS NON-INSULIN-DEPENDENT
     Dosage: SEE IMAGE
     Route: 058
     Dates: start: 20051001, end: 20050101
  2. BYETTA [Suspect]
     Indication: DIABETES MELLITUS NON-INSULIN-DEPENDENT
     Dosage: SEE IMAGE
     Route: 058
     Dates: start: 20051101, end: 20060920
  3. BYETTA [Suspect]
     Indication: DIABETES MELLITUS NON-INSULIN-DEPENDENT
     Dosage: SEE IMAGE
     Route: 058
     Dates: start: 20060901
  4. METFORMIN HCL [Concomitant]
  5. GLIPIZIDE [Concomitant]
  6. ZESTRIL [Concomitant]
  7. AVAPRO [Concomitant]
  8. COREG [Concomitant]
  9. STEROID [Concomitant]
  10. FUROSEMIDE [Concomitant]
  11. DIGITALIS TAB [Concomitant]
  12. TYLENOL [Concomitant]
  13. ULTRAM [Concomitant]

REACTIONS (14)
  - ABDOMINAL DISTENSION [None]
  - BACK PAIN [None]
  - BLOOD GLUCOSE INCREASED [None]
  - BLOOD PRESSURE DECREASED [None]
  - CARDIOMYOPATHY [None]
  - CONSTIPATION [None]
  - DECREASED APPETITE [None]
  - DIZZINESS [None]
  - DYSPNOEA [None]
  - HYPOGLYCAEMIA [None]
  - NASOPHARYNGITIS [None]
  - NAUSEA [None]
  - PULMONARY OEDEMA [None]
  - WEIGHT DECREASED [None]
